FAERS Safety Report 14538581 (Version 1)
Quarter: 2018Q1

REPORT INFORMATION
  Report Type: Spontaneous
  Country: US (occurrence: US)
  Receive Date: 20180216
  Receipt Date: 20180216
  Transmission Date: 20180509
  Serious: Yes (Other)
  Sender: FDA-Public Use
  Company Number: US-BRISTOL-MYERS SQUIBB COMPANY-BMS-2018-013172

PATIENT
  Age: 73 Year
  Sex: Male
  Weight: 83.91 kg

DRUGS (1)
  1. OPDIVO [Suspect]
     Active Substance: NIVOLUMAB
     Indication: SQUAMOUS CELL CARCINOMA OF LUNG
     Dosage: 240 MG, Q3WK
     Route: 042
     Dates: start: 201512

REACTIONS (2)
  - Malignant neoplasm progression [Unknown]
  - Off label use [Unknown]
